FAERS Safety Report 5671096-4 (Version None)
Quarter: 2008Q1

REPORT INFORMATION
  Report Type: 
  Country: None (occurrence: None)
  Receive Date: 20080318
  Receipt Date: 20080310
  Transmission Date: 20080703
  Serious: Yes (Disabling)
  Sender: FDA-Public Use
  Company Number: US-ELI_LILLY_AND_COMPANY-US200801005283

PATIENT
  Sex: Male

DRUGS (4)
  1. HUMALOG [Suspect]
  2. LEVOTHYROXINE SODIUM [Concomitant]
  3. PLAVIX [Concomitant]
  4. LANTUS [Concomitant]

REACTIONS (1)
  - VISUAL FIELD DEFECT [None]
